FAERS Safety Report 6909207-2 (Version None)
Quarter: 2010Q3

REPORT INFORMATION
  Report Type: 
  Country: None (occurrence: None)
  Receive Date: 20100716
  Receipt Date: 20090303
  Transmission Date: 20110219
  Serious: Yes (Hospitalization, Other)
  Sender: FDA-Public Use
  Company Number: 2006096111

PATIENT
  Age: 77 Year
  Sex: Male
  Weight: 81.6 kg

DRUGS (2)
  1. CELEBREX [Suspect]
     Dosage: 200 MG, 1X/DAY, ORAL
     Route: 048
     Dates: start: 20011119
  2. VIOXX [Suspect]
     Dosage: , ORAL
     Dates: start: 20030701

REACTIONS (1)
  - CEREBROVASCULAR ACCIDENT [None]
